FAERS Safety Report 7887282-9 (Version None)
Quarter: 2011Q4

REPORT INFORMATION
  Report Type: 
  Country: None (occurrence: None)
  Receive Date: 20111102
  Receipt Date: 20110717
  Transmission Date: 20120403
  Serious: No
  Sender: FDA-Public Use
  Company Number: US-AMGEN-USASP2011036215

PATIENT
  Sex: Female

DRUGS (1)
  1. ENBREL [Suspect]
     Indication: PSORIATIC ARTHROPATHY
     Dosage: 50 MG, QWK
     Dates: start: 20070101

REACTIONS (4)
  - FOOT DEFORMITY [None]
  - MUSCULOSKELETAL PAIN [None]
  - JOINT SWELLING [None]
  - ARTHRALGIA [None]
